FAERS Safety Report 9980154 (Version 1)
Quarter: 2014Q1

REPORT INFORMATION
  Report Type: Report from Study
  Country: US (occurrence: US)
  Receive Date: 20140307
  Receipt Date: 20140307
  Transmission Date: 20141002
  Serious: Yes (Other)
  Sender: FDA-Public Use
  Company Number: US-ABBVIE-13P-163-1174385-00

PATIENT
  Sex: Female
  Weight: 108.51 kg

DRUGS (19)
  1. HUMIRA [Suspect]
     Indication: PSORIATIC ARTHROPATHY
     Route: 058
     Dates: start: 2010, end: 2012
  2. HUMIRA [Suspect]
     Indication: ANKYLOSING SPONDYLITIS
     Route: 058
     Dates: start: 2012
  3. METHOTREXATE [Suspect]
     Indication: PSORIATIC ARTHROPATHY
  4. GLIMEPIRIDE [Concomitant]
     Indication: DIABETES MELLITUS
  5. JANUMET [Concomitant]
     Indication: DIABETES MELLITUS
     Dosage: 50/1000MG
  6. ATENOLOL [Concomitant]
     Indication: HYPERTENSION
  7. TRICOR [Concomitant]
     Indication: BLOOD CHOLESTEROL INCREASED
  8. CYMBALTA [Concomitant]
     Indication: ANXIETY
  9. CYMBALTA [Concomitant]
     Indication: NEURALGIA
  10. EFFEXOR [Concomitant]
     Indication: DEPRESSION
  11. DIOVAN [Concomitant]
     Indication: HYPERTENSION
  12. ALPRAZOLAM [Concomitant]
     Indication: ANXIETY
  13. RESTASIS [Concomitant]
     Indication: DRY EYE
  14. PATANOL [Concomitant]
     Indication: DRY EYE
  15. ALLEGRA [Concomitant]
     Indication: HYPERSENSITIVITY
  16. CRESTOR [Concomitant]
     Indication: BLOOD CHOLESTEROL INCREASED
     Dosage: QHS
  17. ASPIRIN [Concomitant]
     Indication: CARDIAC DISORDER
  18. TRIAMTERENE/HCTZ [Concomitant]
     Indication: HYPERTENSION
     Dosage: 37.5/25
  19. DICLOFENAC [Concomitant]
     Indication: ARTHRITIS

REACTIONS (12)
  - Nephrolithiasis [Recovered/Resolved]
  - Stag horn calculus [Recovered/Resolved]
  - Injection site pain [Not Recovered/Not Resolved]
  - Blood uric acid increased [Not Recovered/Not Resolved]
  - Blood calcium increased [Not Recovered/Not Resolved]
  - Vitamin D decreased [Recovered/Resolved]
  - Hepatic enzyme increased [Recovered/Resolved]
  - Vitamin D decreased [Not Recovered/Not Resolved]
  - Renal cyst [Not Recovered/Not Resolved]
  - Hyperparathyroidism [Not Recovered/Not Resolved]
  - Urine odour abnormal [Not Recovered/Not Resolved]
  - Cystitis [Not Recovered/Not Resolved]
